FAERS Safety Report 5834631-9 (Version None)
Quarter: 2008Q3

REPORT INFORMATION
  Report Type: 
  Country: None (occurrence: None)
  Receive Date: 20080805
  Receipt Date: 20080723
  Transmission Date: 20090109
  Serious: Yes (Other)
  Sender: FDA-Public Use
  Company Number: PHHY2008FR15335

PATIENT
  Sex: Male

DRUGS (2)
  1. EXJADE [Suspect]
  2. TERALITHE [Interacting]
     Indication: BIPOLAR I DISORDER

REACTIONS (3)
  - BIPOLAR DISORDER [None]
  - DRUG EFFECT DECREASED [None]
  - DRUG INTERACTION [None]
